FAERS Safety Report 16894583 (Version 1)
Quarter: 2019Q4

REPORT INFORMATION
  Report Type: Spontaneous
  Country: US (occurrence: US)
  Receive Date: 20191008
  Receipt Date: 20191008
  Transmission Date: 20200122
  Serious: Yes (Hospitalization)
  Sender: FDA-Public Use
  Company Number: US-INDIVIOR LIMITED-INDV-118477-2019

PATIENT
  Age: 30 Year
  Sex: Male

DRUGS (5)
  1. SUBOXONE [Suspect]
     Active Substance: BUPRENORPHINE HYDROCHLORIDE\NALOXONE HYDROCHLORIDE
     Indication: DRUG DEPENDENCE
     Dosage: UNK
     Route: 060
  2. SUBOXONE [Suspect]
     Active Substance: BUPRENORPHINE HYDROCHLORIDE\NALOXONE HYDROCHLORIDE
     Dosage: 3 QUARTERS OF 8MG FILM, DAILY
     Route: 060
  3. SUBOXONE [Suspect]
     Active Substance: BUPRENORPHINE HYDROCHLORIDE\NALOXONE HYDROCHLORIDE
     Dosage: UNK
     Route: 060
  4. SUBOXONE [Suspect]
     Active Substance: BUPRENORPHINE HYDROCHLORIDE\NALOXONE HYDROCHLORIDE
     Dosage: ONE AND A HALF 8MG FILM DAILY
     Route: 060
  5. SUBOXONE [Suspect]
     Active Substance: BUPRENORPHINE HYDROCHLORIDE\NALOXONE HYDROCHLORIDE
     Dosage: HALF FILM MORNING AND A QUARTER IN THE EVENING AS NEEDED
     Route: 060

REACTIONS (12)
  - Drug detoxification [Recovered/Resolved]
  - Inappropriate schedule of product administration [Unknown]
  - Bone pain [Unknown]
  - Wrong technique in product usage process [Unknown]
  - Intentional underdose [Recovered/Resolved]
  - Drug ineffective [Unknown]
  - Restlessness [Not Recovered/Not Resolved]
  - Euphoric mood [Unknown]
  - Substance abuse [Recovered/Resolved]
  - Drug withdrawal syndrome [Unknown]
  - Intentional product use issue [Unknown]
  - Drug intolerance [Unknown]
